FAERS Safety Report 6009632-0 (Version None)
Quarter: 2008Q4

REPORT INFORMATION
  Report Type: 
  Country: None (occurrence: None)
  Receive Date: 20081217
  Receipt Date: 20081024
  Transmission Date: 20090506
  Serious: No
  Sender: FDA-Public Use
  Company Number: US-BAYER-200837053NA

PATIENT
  Sex: Female

DRUGS (2)
  1. YAZ [Suspect]
     Indication: DRUG USE FOR UNKNOWN INDICATION
     Route: 048
     Dates: start: 20080101
  2. OTC COUGH/COLD MEDICINE NOS [Concomitant]
     Dates: start: 20081001

REACTIONS (2)
  - COUGH [None]
  - NASOPHARYNGITIS [None]
